FAERS Safety Report 7502339-X (Version None)
Quarter: 2011Q2

REPORT INFORMATION
  Report Type: 
  Country: None (occurrence: None)
  Receive Date: 20110525
  Receipt Date: 20110513
  Transmission Date: 20111010
  Serious: Yes (Hospitalization)
  Sender: FDA-Public Use
  Company Number: FR-ELI_LILLY_AND_COMPANY-FR201105004197

PATIENT
  Age: 65 Year
  Sex: Male

DRUGS (4)
  1. B12-VITAMIN [Concomitant]
     Indication: VITAMIN SUPPLEMENTATION
     Dosage: UNK, UNKNOWN
     Route: 065
  2. ALIMTA [Suspect]
     Indication: NON-SMALL CELL LUNG CANCER
     Dosage: 500 MG/M2, OTHER
     Route: 042
     Dates: start: 20110101, end: 20110101
  3. CORTICOSTEROID NOS [Concomitant]
     Indication: PROPHYLAXIS
  4. FOLIC ACID [Concomitant]
     Indication: VITAMIN SUPPLEMENTATION
     Dosage: UNK, UNKNOWN
     Route: 065

REACTIONS (4)
  - HYPOMETABOLISM [None]
  - FEBRILE NEUTROPENIA [None]
  - OVERDOSE [None]
  - THROMBOCYTOPENIA [None]
